FAERS Safety Report 10165441 (Version 2)
Quarter: 2014Q2

REPORT INFORMATION
  Report Type: Spontaneous
  Country: US (occurrence: US)
  Receive Date: 20140510
  Receipt Date: 20140510
  Transmission Date: 20141212
  Serious: No
  Sender: FDA-Public Use
  Company Number: US-BRISTOL-MYERS SQUIBB COMPANY-19837418

PATIENT
  Age: 63 Year
  Sex: Male
  Weight: 78.46 kg

DRUGS (2)
  1. BYDUREON [Suspect]
     Route: 058
     Dates: start: 2013
  2. NOVOLOG [Suspect]

REACTIONS (1)
  - Blood glucose increased [Unknown]
